FAERS Safety Report 5398836-6 (Version None)
Quarter: 2007Q3

REPORT INFORMATION
  Report Type: 
  Country: None (occurrence: None)
  Receive Date: 20070725
  Receipt Date: 20070725
  Transmission Date: 20080115
  Serious: Yes (Hospitalization)
  Sender: FDA-Public Use
  Company Number: None

PATIENT
  Sex: Female
  Weight: 78 kg

DRUGS (1)
  1. CISPLATIN [Suspect]
     Dosage: 368 MG
     Dates: end: 20070625

REACTIONS (1)
  - ANXIETY [None]
